FAERS Safety Report 5099495-2 (Version None)
Quarter: 2006Q3

REPORT INFORMATION
  Report Type: 
  Country: None (occurrence: None)
  Receive Date: 20060908
  Receipt Date: 20060829
  Transmission Date: 20061208
  Serious: Yes (Other)
  Sender: FDA-Public Use
  Company Number: PHEH2006US11328

PATIENT
  Sex: Male

DRUGS (5)
  1. DIOVAN HCT [Suspect]
     Indication: HYPERTENSION
     Dosage: 160MG VAL/25MG HCT, UNK
  2. AVANDAMET [Concomitant]
     Indication: HYPERTENSION
     Dosage: 4MG, UNK
  3. ACTOS /USA/ [Concomitant]
     Indication: HYPERTENSION
     Dosage: 30MG, UNK
  4. NORVASC [Concomitant]
     Indication: HYPERTENSION
  5. METFORMIN HCL [Concomitant]
     Indication: HYPERTENSION
     Dosage: 500MG, 2 TABS BID

REACTIONS (1)
  - VASCULAR BYPASS GRAFT [None]
